FAERS Safety Report 7418616-7 (Version None)
Quarter: 2011Q2

REPORT INFORMATION
  Report Type: 
  Country: None (occurrence: None)
  Receive Date: 20110415
  Receipt Date: 20101021
  Transmission Date: 20111010
  Serious: Yes (Hospitalization)
  Sender: FDA-Public Use
  Company Number: US-BAYER-201013939NA

PATIENT
  Age: 29 Year
  Sex: Female
  Weight: 139.68 kg

DRUGS (12)
  1. YASMIN [Suspect]
     Indication: MENORRHAGIA
  2. EFFEXOR XR [Concomitant]
     Dosage: 75 MG, UNK
     Route: 048
     Dates: start: 20070401
  3. MULTI-VITAMIN [Concomitant]
     Indication: UNEVALUABLE INVESTIGATION
  4. YAZ [Suspect]
     Indication: PREMENSTRUAL SYNDROME
     Route: 048
  5. YASMIN [Suspect]
     Indication: ACNE
  6. ZOLOFT [Concomitant]
     Indication: DEPRESSION
     Dates: start: 20020101, end: 20100101
  7. ACETAMINOPHEN [Concomitant]
     Indication: HEADACHE
     Dosage: OCCASIONAL USE
  8. YAZ [Suspect]
     Indication: ACNE
  9. YASMIN [Suspect]
     Indication: PREMENSTRUAL SYNDROME
     Route: 048
     Dates: start: 20080401, end: 20080615
  10. AMITRIPTYLINE [Concomitant]
     Indication: VERTIGO
     Dates: start: 20020101, end: 20100101
  11. METFORMIN HCL [Concomitant]
     Dosage: 500 MG, BID
     Dates: start: 20080401
  12. EFFEXOR XR [Concomitant]
     Dosage: 150 MG, UNK
     Route: 048
     Dates: start: 20070401

REACTIONS (1)
  - PULMONARY EMBOLISM [None]
